FAERS Safety Report 6255530-7 (Version None)
Quarter: 2009Q2

REPORT INFORMATION
  Report Type: 
  Country: None (occurrence: None)
  Receive Date: 20090630
  Receipt Date: 20090619
  Transmission Date: 20091009
  Serious: Yes (Hospitalization)
  Sender: FDA-Public Use
  Company Number: 2009US002491

PATIENT
  Age: 47 Year
  Sex: Female

DRUGS (5)
  1. AMBISOME [Suspect]
     Indication: ACUTE MYELOID LEUKAEMIA
     Dosage: 125 MG, UID/QD, IV DRIP
     Route: 041
     Dates: start: 20090526, end: 20090615
  2. GASTER [Concomitant]
  3. MUCOSTA (REBAMIPIDE) [Concomitant]
  4. SULFAMETHOXAZOLE AND TRIMETHOPRIM [Concomitant]
  5. POLARAMINE (CHLORPHENAMINE MALEATE) [Concomitant]

REACTIONS (1)
  - THROMBOPHLEBITIS [None]
